FAERS Safety Report 12597448 (Version 8)
Quarter: 2017Q1

REPORT INFORMATION
  Report Type: Report from Study
  Country: BR (occurrence: BR)
  Receive Date: 20160726
  Receipt Date: 20170226
  Transmission Date: 20170428
  Serious: Yes (Life-Threatening, Hospitalization, Other)
  Sender: FDA-Public Use
  Company Number: PHHY2014BR126042

PATIENT
  Age: 72 Year
  Sex: Male
  Weight: 80 kg

DRUGS (14)
  1. ALOPURINOL [Concomitant]
     Active Substance: ALLOPURINOL
     Indication: PRODUCT USED FOR UNKNOWN INDICATION
     Dosage: 1 DF, QD
     Route: 048
  2. FLUOXETINE [Concomitant]
     Active Substance: FLUOXETINE HYDROCHLORIDE
     Indication: DECREASED INTEREST
     Dosage: 1 DF, QD
     Route: 048
  3. DIGOXIN. [Concomitant]
     Active Substance: DIGOXIN
     Indication: CARDIAC DISORDER
     Dosage: 1 DF, QD
     Route: 048
     Dates: start: 2013
  4. ACIDO FOLICO//FOLIC ACID [Concomitant]
     Active Substance: FOLIC ACID
     Indication: SICKLE CELL ANAEMIA
     Dosage: 1 DF, QOD (ON MONDAYS, WEDNESDAYS AND FRIDAYS)
     Route: 048
  5. OMEPRAZOLE. [Concomitant]
     Active Substance: OMEPRAZOLE
     Indication: GASTRIC DISORDER
     Dosage: 1 DF, QD
     Route: 048
  6. LASIX [Concomitant]
     Active Substance: FUROSEMIDE
     Indication: HYPERTENSION
     Dosage: 1 DF, QD
     Route: 048
     Dates: start: 2013
  7. LOSARTAN. [Concomitant]
     Active Substance: LOSARTAN
     Indication: HYPERTENSION
     Dosage: 1 DF, BID
     Route: 048
     Dates: start: 2013
  8. VITAMIN B12 [Concomitant]
     Active Substance: CYANOCOBALAMIN
     Indication: PRODUCT USED FOR UNKNOWN INDICATION
     Dosage: 1 DF, Q2MO (1 AMPOULE EVERY 2 MONTHS)
     Route: 058
  9. EXJADE [Suspect]
     Active Substance: DEFERASIROX
     Dosage: 3 DF (20 MG/KG) (1500 MG), QHS (AFTERNOON/AT NIGHT 30 MINUTES BEFORE MEAL)
     Route: 048
     Dates: start: 20140910
  10. EXJADE [Suspect]
     Active Substance: DEFERASIROX
     Indication: MYELOFIBROSIS
     Dosage: UNK
     Route: 048
  11. DANAZOL. [Concomitant]
     Active Substance: DANAZOL
     Indication: BLOOD DISORDER
     Dosage: 2 DF, BID
     Route: 048
  12. METFORMIN [Concomitant]
     Active Substance: METFORMIN HYDROCHLORIDE
     Indication: DIABETES MELLITUS
     Dosage: 2 DF, QD
     Route: 065
  13. FINASTERIDE. [Concomitant]
     Active Substance: FINASTERIDE
     Indication: PROSTATOMEGALY
     Dosage: 1 DF, QD
     Route: 048
  14. ACE//PARACETAMOL [Concomitant]
     Active Substance: ACETAMINOPHEN
     Indication: PAIN
     Dosage: 1 DF, Q8H
     Route: 048

REACTIONS (42)
  - Dyspnoea [Unknown]
  - Malaise [Unknown]
  - Asthenia [Unknown]
  - Diarrhoea [Unknown]
  - Pyrexia [Unknown]
  - Decreased appetite [Recovering/Resolving]
  - Hypoacusis [Not Recovered/Not Resolved]
  - Abdominal discomfort [Unknown]
  - Cardiomegaly [Unknown]
  - Weight increased [Unknown]
  - Blood pressure abnormal [Unknown]
  - Weight decreased [Unknown]
  - Mass [Unknown]
  - Rash macular [Unknown]
  - Myocardial infarction [Unknown]
  - Erythema [Unknown]
  - Sluggishness [Unknown]
  - Spinal disorder [Unknown]
  - Vomiting [Recovered/Resolved]
  - Coma [Unknown]
  - Depression [Recovering/Resolving]
  - Depressed mood [Unknown]
  - Constipation [Unknown]
  - Nausea [Unknown]
  - Vomiting [Unknown]
  - Cystitis [Not Recovered/Not Resolved]
  - Deafness unilateral [Recovering/Resolving]
  - Breath odour [Unknown]
  - Expired product administered [Unknown]
  - Macule [Not Recovered/Not Resolved]
  - Skin discolouration [Unknown]
  - Abdominal pain upper [Unknown]
  - Myelofibrosis [Unknown]
  - Dysgeusia [Unknown]
  - Arthralgia [Unknown]
  - Peripheral swelling [Unknown]
  - Swelling face [Unknown]
  - Cardiac disorder [Unknown]
  - Liver disorder [Recovering/Resolving]
  - Renal disorder [Recovering/Resolving]
  - Malignant neoplasm progression [Unknown]
  - Decreased immune responsiveness [Unknown]

NARRATIVE: CASE EVENT DATE: 201312
